FAERS Safety Report 5120094-8 (Version None)
Quarter: 2006Q3

REPORT INFORMATION
  Report Type: 
  Country: None (occurrence: None)
  Receive Date: 20060929
  Receipt Date: 20060918
  Transmission Date: 20061208
  Serious: Yes (Hospitalization)
  Sender: FDA-Public Use
  Company Number: 2006SP001710

PATIENT
  Age: 52 Year
  Sex: Male

DRUGS (2)
  1. REBETOL [Suspect]
     Indication: DRUG USE FOR UNKNOWN INDICATION
     Dates: end: 20060801
  2. INTERFERON ALFA-2A (INTERFERON ALFA-2A) [Suspect]
     Indication: DRUG USE FOR UNKNOWN INDICATION

REACTIONS (2)
  - NEPHROTIC SYNDROME [None]
  - THROMBOCYTOPENIA [None]
